FAERS Safety Report 17436659 (Version 1)
Quarter: 2020Q1

REPORT INFORMATION
  Report Type: Spontaneous
  Country: US (occurrence: US)
  Receive Date: 20200219
  Receipt Date: 20200219
  Transmission Date: 20200409
  Serious: Yes (Hospitalization)
  Sender: FDA-Public Use
  Company Number: US-ASTRAZENECA-2020SE23704

PATIENT
  Age: 87 Day
  Sex: Female
  Weight: 4.5 kg

DRUGS (2)
  1. SYNAGIS [Suspect]
     Active Substance: PALIVIZUMAB
     Indication: ANTIVIRAL PROPHYLAXIS
     Dosage: 76.43 MG
     Route: 030
  2. CAPTOPRIL. [Concomitant]
     Active Substance: CAPTOPRIL
     Route: 065

REACTIONS (1)
  - Rhinovirus infection [Unknown]
